FAERS Safety Report 4758599-1 (Version None)
Quarter: 2005Q3

REPORT INFORMATION
  Report Type: 
  Country: None (occurrence: None)
  Receive Date: 20050826
  Receipt Date: 20050816
  Transmission Date: 20060218
  Serious: Yes (Death)
  Sender: FDA-Public Use
  Company Number: HQWYE894519OCT04

PATIENT
  Age: 55 Year
  Sex: Male

DRUGS (4)
  1. ROFERON, CONTROL FOR TEMSIROLIMUS (INTERFERON ALFA, CONTROL FOR TEMSIR [Suspect]
     Indication: RENAL CELL CARCINOMA STAGE UNSPECIFIED
     Dosage: 18 MU THREE TIMES A WEEK SC
     Route: 058
     Dates: start: 20040930, end: 20041016
  2. PARACETAMOL (PARACETAMOL) [Concomitant]
  3. RECORMON (ERYTHROPOIETIN HUMAN) [Concomitant]
  4. KETOPROFEN [Concomitant]

REACTIONS (16)
  - AGGRESSION [None]
  - APHASIA [None]
  - BLOOD PRESSURE INCREASED [None]
  - BONE DISORDER [None]
  - CALCULUS URINARY [None]
  - CEREBRAL VENTRICLE DILATATION [None]
  - CEREBROVASCULAR DISORDER [None]
  - CONVULSION [None]
  - DEPRESSED LEVEL OF CONSCIOUSNESS [None]
  - HAEMATOCRIT DECREASED [None]
  - HAEMOGLOBIN DECREASED [None]
  - INFLAMMATION [None]
  - LUNG DISORDER [None]
  - NEPHROLITHIASIS [None]
  - RED BLOOD CELL COUNT DECREASED [None]
  - RENAL DISORDER [None]
